FAERS Safety Report 8785395 (Version 1)
Quarter: 2012Q4

REPORT INFORMATION
  Report Type: 
  Country: US (occurrence: US)
  Receive Date: 20120914
  Receipt Date: 20120914
  Transmission Date: 20130627
  Serious: No
  Sender: FDA-Public Use
  Company Number: US-PFIZER INC-2012224408

PATIENT
  Age: 74 Year
  Sex: Female

DRUGS (6)
  1. CLINDAMYCIN HCL [Suspect]
     Dosage: UNK
  2. CODEINE [Suspect]
     Dosage: UNK
  3. LISINOPRIL [Suspect]
     Dosage: UNK
  4. COMPAZINE [Suspect]
     Dosage: UNK
  5. PROZAC [Suspect]
     Dosage: UNK
  6. THORAZINE [Suspect]
     Dosage: UNK

REACTIONS (1)
  - Drug hypersensitivity [Unknown]
